FAERS Safety Report 24536024 (Version 1)
Quarter: 2024Q4

REPORT INFORMATION
  Report Type: Report from Study
  Country: US (occurrence: US)
  Receive Date: 20241022
  Receipt Date: 20241022
  Transmission Date: 20250114
  Serious: Yes (Other)
  Sender: JAZZ
  Company Number: US-JAZZ PHARMACEUTICALS-2023-US-018264

PATIENT
  Age: 31 Year
  Sex: Male

DRUGS (42)
  1. XYWAV [Suspect]
     Active Substance: CALCIUM OXYBATE\MAGNESIUM OXYBATE\POTASSIUM OXYBATE\SODIUM OXYBATE
     Indication: Hypersomnia
     Dosage: 3 GRAM, BID
     Dates: start: 202306
  2. XYWAV [Suspect]
     Active Substance: CALCIUM OXYBATE\MAGNESIUM OXYBATE\POTASSIUM OXYBATE\SODIUM OXYBATE
     Dosage: 3.75 GRAM, BID
  3. XYWAV [Suspect]
     Active Substance: CALCIUM OXYBATE\MAGNESIUM OXYBATE\POTASSIUM OXYBATE\SODIUM OXYBATE
     Dosage: UNK
  4. XYWAV [Suspect]
     Active Substance: CALCIUM OXYBATE\MAGNESIUM OXYBATE\POTASSIUM OXYBATE\SODIUM OXYBATE
     Dosage: 4.5 GRAM, BID
  5. XYWAV [Suspect]
     Active Substance: CALCIUM OXYBATE\MAGNESIUM OXYBATE\POTASSIUM OXYBATE\SODIUM OXYBATE
     Dosage: UNK
  6. MYER^S COC [Concomitant]
     Dosage: 0000
     Dates: start: 20191219
  7. ALINIA [Concomitant]
     Active Substance: NITAZOXANIDE
     Dosage: UNK
     Dates: start: 20191015
  8. LOPERAMIDE HYDROCHLORIDE [Concomitant]
     Active Substance: LOPERAMIDE HYDROCHLORIDE
     Dosage: 0000
     Dates: start: 20191015
  9. NALTREXONE HYDROCHLORIDE [Concomitant]
     Active Substance: NALTREXONE HYDROCHLORIDE
     Dosage: 0000
     Dates: start: 20170727
  10. KEPPRA [Concomitant]
     Active Substance: LEVETIRACETAM
     Dosage: 0000
     Dates: start: 20190525
  11. ARMOUR THYROID [Concomitant]
     Active Substance: THYROID, PORCINE
     Dosage: 0000
     Dates: start: 20190207
  12. CURCUMIN [Concomitant]
     Active Substance: CURCUMIN
     Dosage: 0000
     Dates: start: 20171216
  13. HEMP [Concomitant]
     Active Substance: HEMP
     Dosage: 0000
     Dates: start: 20170728
  14. PROBIOTICS NOS [Concomitant]
     Active Substance: PROBIOTICS NOS
     Dosage: 0000
     Dates: start: 20191012
  15. ZINC PICOLINATE [Concomitant]
     Active Substance: ZINC PICOLINATE
     Dosage: 0000
     Dates: start: 20140519
  16. DIETARY SUPPLEMENT [Concomitant]
     Active Substance: DIETARY SUPPLEMENT
     Dosage: 0000
     Dates: start: 20140521
  17. UBIQUINOL [Concomitant]
     Active Substance: UBIQUINOL
     Dosage: 0000
     Dates: start: 20140521
  18. TRANSFER FACTOR [Concomitant]
     Dosage: 0000
     Dates: start: 20140501
  19. LACTOBACILLUS ACIDOPHILUS [Concomitant]
     Active Substance: LACTOBACILLUS ACIDOPHILUS
     Dosage: 0000
     Dates: start: 20191002
  20. PRAVASTATIN SODIUM [Concomitant]
     Active Substance: PRAVASTATIN SODIUM
     Dosage: 0000
     Dates: start: 20221123
  21. MALARONE [Concomitant]
     Active Substance: ATOVAQUONE\PROGUANIL HYDROCHLORIDE
     Dosage: UNK
     Dates: start: 20230903
  22. URSODIOL [Concomitant]
     Active Substance: URSODIOL
     Dosage: UNK
     Dates: start: 20230826
  23. CLARITHROMYCIN [Concomitant]
     Active Substance: CLARITHROMYCIN
     Dosage: UNK
     Dates: start: 20230813
  24. LYRICA [Concomitant]
     Active Substance: PREGABALIN
     Dosage: UNK
     Dates: start: 20230919
  25. HYDROXYCHLOROQUINE [Concomitant]
     Active Substance: HYDROXYCHLOROQUINE
     Dosage: UNK
     Dates: start: 20230813
  26. GABAPENTIN [Concomitant]
     Active Substance: GABAPENTIN
     Dosage: UNK
     Dates: start: 20230919
  27. FIORICET [Concomitant]
     Active Substance: ACETAMINOPHEN\BUTALBITAL\CAFFEINE
  28. GEODON [Concomitant]
     Active Substance: ZIPRASIDONE HYDROCHLORIDE\ZIPRASIDONE MESYLATE
  29. CHLORELLA [CHLORELLA SPP.] [Concomitant]
     Dosage: 1 GRAM
  30. ONFI [Concomitant]
     Active Substance: CLOBAZAM
     Dosage: UNK
     Dates: start: 20240318
  31. NAD [Concomitant]
     Dosage: UNK
     Dates: start: 20240410
  32. OZEMPIC [Concomitant]
     Active Substance: SEMAGLUTIDE
     Dosage: UNK
     Dates: start: 20240310
  33. TETRACYCLINE [Concomitant]
     Active Substance: TETRACYCLINE
     Dosage: UNK
     Dates: start: 20240415
  34. DIFLUCAN [Concomitant]
     Active Substance: FLUCONAZOLE
     Dosage: UNK
     Dates: start: 20240415
  35. IODO [Concomitant]
     Dosage: UNK
     Dates: start: 20151026
  36. BH 002 [Concomitant]
     Dosage: SKIN TABLETS
  37. BH 002 [Concomitant]
     Dosage: SKIN TABLETS
  38. MIDAZOLAM HYDROCHLORIDE [Concomitant]
     Active Substance: MIDAZOLAM HYDROCHLORIDE
     Dosage: 10 MG/5 ML CUP
     Dates: start: 20240707
  39. MINOCYCLINE HYDROCHLORIDE [Concomitant]
     Active Substance: MINOCYCLINE HYDROCHLORIDE
     Dosage: UNK
     Dates: start: 20240823, end: 20240827
  40. MEFLOQUINE [Concomitant]
     Active Substance: MEFLOQUINE
     Indication: Product used for unknown indication
     Dosage: UNK
     Dates: start: 20240822
  41. PROPRANOLOL [Concomitant]
     Active Substance: PROPRANOLOL HYDROCHLORIDE
     Indication: Product used for unknown indication
     Dosage: UNK
     Dates: start: 20240924
  42. AMLODIPINE BESYLATE [Concomitant]
     Active Substance: AMLODIPINE BESYLATE
     Indication: Product used for unknown indication
     Dosage: 2.5 MILLIGRAM, QD
     Dates: start: 20241001

REACTIONS (5)
  - Bartonellosis [Unknown]
  - Suicidal ideation [Unknown]
  - Depression [Unknown]
  - Insomnia [Unknown]
  - Illness [Unknown]

NARRATIVE: CASE EVENT DATE: 20240801
